FAERS Safety Report 25116689 (Version 1)
Quarter: 2025Q1

REPORT INFORMATION
  Report Type: Spontaneous
  Country: US (occurrence: US)
  Receive Date: 20250325
  Receipt Date: 20250325
  Transmission Date: 20250409
  Serious: No
  Sender: TAKEDA
  Company Number: US-TAKEDA-2025TUS030095

PATIENT
  Sex: Female

DRUGS (1)
  1. HYQVIA [Suspect]
     Active Substance: HUMAN IMMUNOGLOBULIN G\HYALURONIDASE (HUMAN RECOMBINANT)
     Indication: Product used for unknown indication
     Dosage: UNK UNK, MONTHLY
     Dates: start: 202406

REACTIONS (5)
  - Illness [Unknown]
  - Malabsorption from administration site [Unknown]
  - Wrong device used [Unknown]
  - Infusion site bruising [Unknown]
  - Infusion site discomfort [Unknown]
